FAERS Safety Report 18588017 (Version 20)
Quarter: 2023Q2

REPORT INFORMATION
  Report Type: Report from Study
  Country: FR (occurrence: None)
  Receive Date: 20201207
  Receipt Date: 20230417
  Transmission Date: 20230722
  Serious: Yes (Hospitalization)
  Sender: FDA-Public Use
  Company Number: FR-EISAI MEDICAL RESEARCH-EC-2020-084779

PATIENT
  Age: 64 Year
  Sex: Male
  Weight: 54 kg

DRUGS (14)
  1. LENVATINIB [Suspect]
     Active Substance: LENVATINIB
     Indication: Malignant melanoma
     Route: 048
     Dates: start: 20201109, end: 20201129
  2. LENVATINIB [Suspect]
     Active Substance: LENVATINIB
     Dosage: DOSE DECREASED
     Route: 048
     Dates: start: 20201204, end: 20210131
  3. LENVATINIB [Suspect]
     Active Substance: LENVATINIB
     Dosage: DOSE DECREASED
     Route: 048
     Dates: start: 20210201, end: 20210829
  4. LENVATINIB [Suspect]
     Active Substance: LENVATINIB
     Dosage: DOSE DECREASED
     Route: 048
     Dates: start: 20210920
  5. PEMBROLIZUMAB [Suspect]
     Active Substance: PEMBROLIZUMAB
     Indication: Malignant melanoma
     Route: 041
     Dates: start: 20201109, end: 20201109
  6. PEMBROLIZUMAB [Suspect]
     Active Substance: PEMBROLIZUMAB
     Route: 041
     Dates: start: 20201221
  7. QUAVONLIMAB [Suspect]
     Active Substance: QUAVONLIMAB
     Indication: Malignant melanoma
     Route: 042
     Dates: start: 20201109, end: 20201109
  8. QUAVONLIMAB [Suspect]
     Active Substance: QUAVONLIMAB
     Route: 042
     Dates: start: 20201221
  9. SKENAN [Concomitant]
     Active Substance: MORPHINE SULFATE
     Dates: start: 20201013
  10. MORPHINE SULFATE [Concomitant]
     Active Substance: MORPHINE SULFATE
     Dates: start: 20201013
  11. DOLIPRANE [Concomitant]
     Active Substance: ACETAMINOPHEN
     Dates: start: 20201013
  12. NEURONTIN [Concomitant]
     Active Substance: GABAPENTIN
     Dates: start: 20201013
  13. DUPHALAC [Concomitant]
     Active Substance: LACTULOSE
     Dates: start: 20201013
  14. MINERAL OIL [Concomitant]
     Active Substance: MINERAL OIL
     Dates: start: 20201013

REACTIONS (1)
  - Weight decreased [Not Recovered/Not Resolved]

NARRATIVE: CASE EVENT DATE: 20201130
